FAERS Safety Report 5178872-5 (Version None)
Quarter: 2006Q4

REPORT INFORMATION
  Report Type: 
  Country: None (occurrence: None)
  Receive Date: 20061208
  Receipt Date: 20061129
  Transmission Date: 20070319
  Serious: Yes (Hospitalization, Other)
  Sender: FDA-Public Use
  Company Number: 2006BI017494

PATIENT
  Sex: Female

DRUGS (1)
  1. NATALIZUMAB [Suspect]
     Indication: MULTIPLE SCLEROSIS
     Dosage: IV
     Route: 042
     Dates: start: 20060918, end: 20061016

REACTIONS (9)
  - BLOOD POTASSIUM DECREASED [None]
  - CONTUSION [None]
  - DYSPNOEA [None]
  - FATIGUE [None]
  - HAEMORRHAGE [None]
  - INFLUENZA [None]
  - MALAISE [None]
  - MIGRAINE [None]
  - WHITE BLOOD CELL COUNT DECREASED [None]
